FAERS Safety Report 18976661 (Version 12)
Quarter: 2022Q3

REPORT INFORMATION
  Report Type: Report from Study
  Country: US (occurrence: US)
  Receive Date: 20210306
  Receipt Date: 20220714
  Transmission Date: 20221027
  Serious: Yes (Other)
  Sender: FDA-Public Use
  Company Number: US-NOVARTISPH-NVSC2021US044522

PATIENT
  Sex: Female

DRUGS (2)
  1. ENTRESTO [Suspect]
     Active Substance: SACUBITRIL\VALSARTAN
     Indication: Blood pressure abnormal
     Dosage: 1 DOSAGE FORM, BID
     Route: 048
     Dates: start: 20201001
  2. ENTRESTO [Suspect]
     Active Substance: SACUBITRIL\VALSARTAN
     Dosage: 50 MG, BID (24/26MG)
     Route: 048

REACTIONS (9)
  - Renal impairment [Unknown]
  - Blood pressure inadequately controlled [Unknown]
  - Cardiac murmur [Unknown]
  - Anaemia [Unknown]
  - Blood potassium decreased [Unknown]
  - Hypertension [Unknown]
  - Fatigue [Unknown]
  - Hypotension [Unknown]
  - Product use in unapproved indication [Unknown]
